FAERS Safety Report 7248216-3 (Version None)
Quarter: 2011Q1

REPORT INFORMATION
  Report Type: 
  Country: None (occurrence: None)
  Receive Date: 20110127
  Receipt Date: 20101001
  Transmission Date: 20110831
  Serious: Yes (Hospitalization)
  Sender: FDA-Public Use
  Company Number: US-BAYER-201034903NA

PATIENT
  Sex: Female
  Weight: 61 kg

DRUGS (10)
  1. POTASSIUM CHLORIDE [Concomitant]
     Dosage: UNK
     Dates: start: 19930101
  2. YAZ [Suspect]
     Dosage: UNK
     Dates: start: 20020101, end: 20080101
  3. CELEBREX [Concomitant]
     Dosage: UNK
     Dates: start: 20030801
  4. TETRACYCLINE [Concomitant]
     Dosage: UNK
     Dates: start: 20030801
  5. NAPROSYN [Concomitant]
     Dosage: UNK
     Dates: start: 19930101
  6. LEVAQUIN [Concomitant]
     Dosage: UNK
     Dates: start: 20030901
  7. NAPROXEN [Concomitant]
     Dosage: UNK
     Dates: start: 19930101
  8. YASMIN [Suspect]
     Indication: ACNE
     Dosage: UNK
     Dates: start: 20020101, end: 20080101
  9. FERROUS SULFATE TAB [Concomitant]
     Dosage: UNK
     Dates: start: 20030901
  10. OCELLA [Suspect]

REACTIONS (4)
  - PAIN IN EXTREMITY [None]
  - GENITAL HAEMORRHAGE [None]
  - CHOLECYSTITIS [None]
  - CHOLELITHIASIS [None]
